FAERS Safety Report 9934767 (Version 1)
Quarter: 2014Q1

REPORT INFORMATION
  Report Type: Spontaneous
  Country: CO (occurrence: CO)
  Receive Date: 20140228
  Receipt Date: 20140228
  Transmission Date: 20141002
  Serious: Yes (Other)
  Sender: FDA-Public Use
  Company Number: CO-BRISTOL-MYERS SQUIBB COMPANY-20240834

PATIENT
  Age: 46 Year
  Sex: Female

DRUGS (11)
  1. ABATACEPT SUBQ INJECTION 125MG/ML [Suspect]
     Indication: RHEUMATOID ARTHRITIS
     Dosage: INTERRUPTED ON 11-JUN-2011?RESUME ON 24-SEP-2012
     Route: 058
     Dates: start: 20090613
  2. LEFLUNOMIDE [Concomitant]
     Indication: RHEUMATOID ARTHRITIS
     Dosage: 1-0-0,20-JUN-2012,
     Dates: start: 20060620
  3. CHLOROQUINE [Concomitant]
     Indication: RHEUMATOID ARTHRITIS
     Dosage: 1-0-0
     Dates: start: 20051207
  4. PREDNISOLONE [Concomitant]
     Indication: RHEUMATOID ARTHRITIS
     Dosage: 1-0-0
     Dates: start: 20050101
  5. FLUOXETINE HCL [Concomitant]
  6. FOLIC ACID [Concomitant]
     Indication: PROPHYLAXIS
     Dosage: TABLET
     Dates: start: 20060101
  7. OMEPRAZOLE [Concomitant]
     Indication: GASTRITIS PROPHYLAXIS
     Dosage: CAPS,1-0-0
     Dates: start: 20050101
  8. CYCLOSPORIN [Concomitant]
     Indication: SJOGREN^S SYNDROME
     Dosage: 1-0-1
     Dates: start: 20090825
  9. METHOTREXATE [Concomitant]
     Indication: RHEUMATOID ARTHRITIS
     Dosage: 10MG
     Dates: start: 20060126
  10. CALCIUM CARBONATE [Concomitant]
     Indication: OSTEOPOROSIS PROPHYLAXIS
     Dosage: 0-2-0,CALCIUM CARBONATE + VITS 600MG + 200 UI
     Dates: start: 20060101
  11. SODIUM HYALURONATE [Concomitant]
     Indication: SJOGREN^S SYNDROME
     Dosage: 1DF: 4MG/ML
     Dates: start: 20120222

REACTIONS (3)
  - Surgery [Unknown]
  - Eczema [Not Recovered/Not Resolved]
  - Dry skin [Unknown]
